FAERS Safety Report 8988965 (Version 1)
Quarter: 2012Q4

REPORT INFORMATION
  Report Type: Spontaneous
  Country: US (occurrence: None)
  Receive Date: 20121224
  Receipt Date: 20121224
  Transmission Date: 20130627
  Serious: No
  Sender: FDA-Public Use
  Company Number: None

PATIENT
  Sex: Male
  Weight: 74.3 kg

DRUGS (3)
  1. BEVACIZUMAB [Suspect]
  2. CARBOPLATIN [Suspect]
  3. PACLITAXEL (TAXOL) [Suspect]

REACTIONS (14)
  - Gastrointestinal perforation [None]
  - Haemorrhage [None]
  - Gastrointestinal necrosis [None]
  - Embolism venous [None]
  - Cerebrovascular accident [None]
  - Cardiac failure congestive [None]
  - Posterior reversible encephalopathy syndrome [None]
  - Infection [None]
  - Nephrotic syndrome [None]
  - Infusion related reaction [None]
  - Ileus [None]
  - Acidosis [None]
  - Hypotension [None]
  - Laboratory test abnormal [None]
